FAERS Safety Report 17137167 (Version 2)
Quarter: 2019Q4

REPORT INFORMATION
  Report Type: Spontaneous
  Country: US (occurrence: US)
  Receive Date: 20191210
  Receipt Date: 20191211
  Transmission Date: 20200122
  Serious: Yes (Hospitalization)
  Sender: FDA-Public Use
  Company Number: US-CELGENEUS-USA-20191201485

PATIENT
  Sex: Female

DRUGS (1)
  1. POMALYST [Suspect]
     Active Substance: POMALIDOMIDE
     Indication: PLASMA CELL MYELOMA
     Dosage: 4 MILLIGRAM
     Route: 048
     Dates: start: 20190625

REACTIONS (6)
  - Balance disorder [Unknown]
  - Fall [Unknown]
  - Peripheral swelling [Unknown]
  - Fatigue [Unknown]
  - Constipation [Unknown]
  - Head injury [Unknown]

NARRATIVE: CASE EVENT DATE: 2019
